FAERS Safety Report 21332739 (Version 6)
Quarter: 2023Q1

REPORT INFORMATION
  Report Type: Report from Study
  Country: US (occurrence: US)
  Receive Date: 20220914
  Receipt Date: 20230201
  Transmission Date: 20230417
  Serious: Yes (Other)
  Sender: FDA-Public Use
  Company Number: US-NOVARTISTESTPH-NVSC2022US207524

PATIENT
  Sex: Male

DRUGS (3)
  1. ENTRESTO [Suspect]
     Active Substance: SACUBITRIL\VALSARTAN
     Indication: Product used for unknown indication
     Dosage: UNK
     Route: 065
  2. ENTRESTO [Suspect]
     Active Substance: SACUBITRIL\VALSARTAN
     Dosage: 200 MG, BID
     Route: 065
  3. FARXIGA [Concomitant]
     Active Substance: DAPAGLIFLOZIN PROPANEDIOL
     Indication: Blood glucose increased
     Dosage: UNK
     Route: 065

REACTIONS (8)
  - Brain injury [Unknown]
  - Thinking abnormal [Unknown]
  - Malaise [Unknown]
  - COVID-19 [Unknown]
  - Stress [Unknown]
  - Blood glucose increased [Unknown]
  - Paranasal sinus hypersecretion [Unknown]
  - Cough [Recovered/Resolved]
